FAERS Safety Report 9030597 (Version 3)
Quarter: 2013Q2

REPORT INFORMATION
  Report Type: Spontaneous
  Country: FR (occurrence: FR)
  Receive Date: 20130123
  Receipt Date: 20130426
  Transmission Date: 20140414
  Serious: Yes (Hospitalization)
  Sender: FDA-Public Use
  Company Number: FR-AMGEN-FRASP2013004830

PATIENT
  Age: 61 Year
  Sex: Female
  Weight: 50 kg

DRUGS (2)
  1. ENBREL [Suspect]
     Indication: RHEUMATOID ARTHRITIS
     Dosage: 1 DF, WEEKLY
     Dates: start: 201211, end: 20130117
  2. INSULIN [Suspect]
     Dosage: UNK

REACTIONS (3)
  - Potentiating drug interaction [Recovering/Resolving]
  - Hypoglycaemic coma [Recovering/Resolving]
  - Skin ulcer [Recovered/Resolved]
